FAERS Safety Report 4456130-1 (Version None)
Quarter: 2004Q3

REPORT INFORMATION
  Report Type: 
  Country: None (occurrence: None)
  Receive Date: 20040920
  Receipt Date: 20040907
  Transmission Date: 20050211
  Serious: Yes (Disabling)
  Sender: FDA-Public Use
  Company Number: 2004064580

PATIENT
  Age: 24 Year
  Sex: Male

DRUGS (1)
  1. LIPITOR [Suspect]
     Indication: HYPERCHOLESTEROLAEMIA
     Dosage: 40 MG, ORAL
     Route: 048
     Dates: start: 20040325, end: 20040807

REACTIONS (8)
  - ALANINE AMINOTRANSFERASE INCREASED [None]
  - DIFFICULTY IN WALKING [None]
  - GAMMA-GLUTAMYLTRANSFERASE INCREASED [None]
  - MUSCULOSKELETAL STIFFNESS [None]
  - MYALGIA [None]
  - NEURALGIA [None]
  - PAIN IN EXTREMITY [None]
  - SKIN BURNING SENSATION [None]
